FAERS Safety Report 7308113-1 (Version None)
Quarter: 2011Q1

REPORT INFORMATION
  Report Type: 
  Country: None (occurrence: None)
  Receive Date: 20110223
  Receipt Date: 20110211
  Transmission Date: 20110831
  Serious: Yes (Disabling)
  Sender: FDA-Public Use
  Company Number: US-BAYER-2011-014303

PATIENT
  Sex: Male

DRUGS (2)
  1. NEXAVAR EDUCATION COMPAIGN IN US [Suspect]
     Dosage: 2 IN AM AND 1 IN PM
     Dates: start: 20110210
  2. NEXAVAR EDUCATION COMPAIGN IN US [Suspect]
     Indication: HEPATIC NEOPLASM MALIGNANT
     Dosage: 400 MG, BID
     Dates: start: 20110203

REACTIONS (3)
  - PRURITUS [None]
  - ABASIA [None]
  - PAIN IN EXTREMITY [None]
